FAERS Safety Report 10229692 (Version 1)
Quarter: 2014Q2

REPORT INFORMATION
  Report Type: Spontaneous
  Country: US (occurrence: None)
  Receive Date: 20140610
  Receipt Date: 20140610
  Transmission Date: 20141212
  Serious: Yes (Life-Threatening, Disabling, Other)
  Sender: FDA-Public Use
  Company Number: None

PATIENT
  Age: 70 Year
  Sex: Female
  Weight: 54.43 kg

DRUGS (6)
  1. CAPTOPRIL [Suspect]
     Dosage: BID.
  2. ATORVASTATIN [Suspect]
     Dosage: QD.
  3. LANTUS [Concomitant]
  4. GLIPIZIDE [Concomitant]
  5. VITAMIN D [Concomitant]
  6. ASPIRIN [Concomitant]

REACTIONS (10)
  - Blood glucose decreased [None]
  - Amnesia [None]
  - Asthenia [None]
  - Chromaturia [None]
  - Swelling [None]
  - Post procedural complication [None]
  - Swelling face [None]
  - Skin discolouration [None]
  - Pruritus [None]
  - Fall [None]
